FAERS Safety Report 7440135-2 (Version None)
Quarter: 2011Q2

REPORT INFORMATION
  Report Type: 
  Country: None (occurrence: None)
  Receive Date: 20110427
  Receipt Date: 20100317
  Transmission Date: 20111010
  Serious: No
  Sender: FDA-Public Use
  Company Number: US-BAYER-201017780NA

PATIENT
  Sex: Female

DRUGS (3)
  1. YAZ [Suspect]
  2. ACE INHIBITOR NOS [Concomitant]
     Indication: HYPERTENSION
  3. POTASSIUM [POTASSIUM] [Concomitant]
     Indication: HYPOKALAEMIA

REACTIONS (2)
  - UNEVALUABLE EVENT [None]
  - HEART RATE INCREASED [None]
